FAERS Safety Report 18409456 (Version 1)
Quarter: 2020Q4

REPORT INFORMATION
  Report Type: Report from Study
  Country: IT (occurrence: IT)
  Receive Date: 20201021
  Receipt Date: 20201021
  Transmission Date: 20210114
  Serious: Yes (Other)
  Sender: FDA-Public Use
  Company Number: IT-TEVA-2020-IT-1839549

PATIENT
  Age: 73 Year
  Sex: Female

DRUGS (3)
  1. CLOPIDOGREL [Suspect]
     Active Substance: CLOPIDOGREL BISULFATE
     Indication: PROPHYLAXIS
     Dosage: 1 DF
     Route: 048
     Dates: start: 20180201, end: 20200913
  2. IZBA 30 MICROGRAMS/ML EYE DROPS, SOLUTION [Concomitant]
  3. TIMOGEL 1 MG/G GEL OFTALMICO IN CONTENITORE MONODOSE [Concomitant]

REACTIONS (1)
  - Conjunctival haemorrhage [Recovering/Resolving]

NARRATIVE: CASE EVENT DATE: 20200913
